FAERS Safety Report 7768636-8 (Version None)
Quarter: 2011Q3

REPORT INFORMATION
  Report Type: 
  Country: None (occurrence: None)
  Receive Date: 20110922
  Receipt Date: 20110509
  Transmission Date: 20111222
  Serious: No
  Sender: FDA-Public Use
  Company Number: US-ASTRAZENECA-2011SE27131

PATIENT
  Sex: Female

DRUGS (1)
  1. SEROQUEL [Suspect]
     Route: 048
     Dates: end: 20110101

REACTIONS (4)
  - DYSPHAGIA [None]
  - NASAL OEDEMA [None]
  - NASAL SEPTUM DISORDER [None]
  - SWOLLEN TONGUE [None]
